FAERS Safety Report 6382645-5 (Version None)
Quarter: 2009Q3

REPORT INFORMATION
  Report Type: 
  Country: None (occurrence: None)
  Receive Date: 20090930
  Receipt Date: 20090921
  Transmission Date: 20100115
  Serious: Yes (Death, Hospitalization, Other)
  Sender: FDA-Public Use
  Company Number: US-JNJFOC-20090906335

PATIENT
  Age: 3 Year
  Sex: Male
  Weight: 15.01 kg

DRUGS (9)
  1. REMICADE [Suspect]
     Dosage: 300 MG GIVEN 1 MONTH PRIOR TO ADMISSION
     Route: 042
  2. REMICADE [Suspect]
     Dosage: 300 MG GIVEN 3 MONTHS PRIOR TO ADMISSION
     Route: 042
  3. REMICADE [Suspect]
     Dosage: 300 MG GIVEN 4 MONTHS PRIOR TO ADMISSION
     Route: 042
  4. REMICADE [Suspect]
     Dosage: 100 MG GIVEN 5 MONTHS PRIOR TO ADMISSION
     Route: 042
  5. REMICADE [Suspect]
     Indication: JUVENILE ARTHRITIS
     Dosage: GIVEN 5.5 MONTHS PRIOR TO ADMISSION
     Route: 042
  6. ENBREL [Suspect]
     Indication: JUVENILE ARTHRITIS
     Route: 058
  7. NAPROSYN [Concomitant]
     Dosage: FOR 1 YEAR
  8. METHOTREXATE [Concomitant]
     Dosage: FOR 8 MONTHS
     Route: 048
  9. PREDNISOLONE [Concomitant]

REACTIONS (8)
  - ARTHRALGIA [None]
  - BRAIN HERNIATION [None]
  - CULTURE THROAT POSITIVE [None]
  - DISSEMINATED TUBERCULOSIS [None]
  - HYDROCEPHALUS [None]
  - JOINT SWELLING [None]
  - ORGAN FAILURE [None]
  - PYREXIA [None]
